FAERS Safety Report 7061033-2 (Version None)
Quarter: 2010Q4

REPORT INFORMATION
  Report Type: 
  Country: None (occurrence: None)
  Receive Date: 20101026
  Receipt Date: 20101013
  Transmission Date: 20110411
  Serious: Yes (Other)
  Sender: FDA-Public Use
  Company Number: US-PFIZER INC-2010131055

PATIENT
  Sex: Male
  Weight: 249.7 kg

DRUGS (6)
  1. LYRICA [Suspect]
     Indication: DIABETIC NEUROPATHY
     Dosage: 75 MG, 2X/DAY
     Route: 048
  2. LYRICA [Suspect]
     Indication: PAIN
  3. OXYCONTIN [Suspect]
  4. ACETAMINOPHEN AND OXYCODONE HCL [Concomitant]
     Dosage: 10/500 MG
  5. FLEXERIL [Concomitant]
  6. MOBIC [Concomitant]

REACTIONS (1)
  - GASTRIC BANDING [None]
